FAERS Safety Report 4838986-3 (Version None)
Quarter: 2005Q4

REPORT INFORMATION
  Report Type: 
  Country: None (occurrence: None)
  Receive Date: 20051129
  Receipt Date: 20051118
  Transmission Date: 20060501
  Serious: Yes (Death, Life-Threatening, Hospitalization)
  Sender: FDA-Public Use
  Company Number: NL-JNJFOC-20050505745

PATIENT
  Sex: Female
  Weight: 54 kg

DRUGS (7)
  1. INFLIXIMAB, RECOMBINANT [Suspect]
     Indication: RHEUMATOID ARTHRITIS
     Dosage: NO DRUG ADMINISTERED
     Route: 042
  2. SULFASALAZINE [Concomitant]
     Route: 065
     Dates: start: 20020516
  3. METHOTREXATE [Concomitant]
     Route: 065
     Dates: start: 20011031
  4. FOLIC ACID [Concomitant]
     Route: 065
     Dates: start: 20011031
  5. HYDROXYCHLOROQUINE SULFATE [Concomitant]
     Route: 065
     Dates: start: 20050126
  6. DEVARON [Concomitant]
     Indication: OSTEOPOROSIS
     Route: 065
     Dates: start: 20011214
  7. FOSAMAX [Concomitant]
     Indication: OSTEOPOROSIS
     Route: 065
     Dates: start: 20011214

REACTIONS (2)
  - METASTASES TO CENTRAL NERVOUS SYSTEM [None]
  - NON-SMALL CELL LUNG CANCER [None]
